FAERS Safety Report 20557359 (Version 1)
Quarter: 2022Q1

REPORT INFORMATION
  Report Type: Spontaneous
  Country: CA (occurrence: CA)
  Receive Date: 20220307
  Receipt Date: 20220307
  Transmission Date: 20220423
  Serious: Yes (Hospitalization, Other)
  Sender: FDA-Public Use
  Company Number: CA-APOTEX-2022AP004099

PATIENT
  Sex: Male

DRUGS (27)
  1. CLOZAPINE [Interacting]
     Active Substance: CLOZAPINE
     Indication: Schizoaffective disorder bipolar type
     Dosage: 625 MILLIGRAM, QD
     Route: 065
  2. CLOZAPINE [Interacting]
     Active Substance: CLOZAPINE
     Indication: Obsessive-compulsive disorder
     Dosage: 150 MILLIGRAM, QD
     Route: 065
  3. CLOZAPINE [Interacting]
     Active Substance: CLOZAPINE
     Indication: Psychotic disorder
  4. FLUVOXAMINE [Interacting]
     Active Substance: FLUVOXAMINE
     Indication: Schizoaffective disorder bipolar type
     Dosage: UNK
     Route: 065
  5. FLUVOXAMINE [Interacting]
     Active Substance: FLUVOXAMINE
     Indication: Obsessive-compulsive disorder
     Dosage: 200 MILLIGRAM, QD
     Route: 065
  6. FLUVOXAMINE [Interacting]
     Active Substance: FLUVOXAMINE
     Indication: Psychotic disorder
  7. OXAZEPAM [Suspect]
     Active Substance: OXAZEPAM
     Indication: Schizoaffective disorder bipolar type
     Dosage: 20 MILLIGRAM
     Route: 065
  8. OXAZEPAM [Suspect]
     Active Substance: OXAZEPAM
     Indication: Obsessive-compulsive disorder
  9. OXAZEPAM [Suspect]
     Active Substance: OXAZEPAM
     Indication: Psychotic disorder
  10. DIVALPROEX SODIUM [Suspect]
     Active Substance: DIVALPROEX SODIUM
     Indication: Schizoaffective disorder bipolar type
     Dosage: 1500 MILLIGRAM
     Route: 065
  11. DIVALPROEX SODIUM [Suspect]
     Active Substance: DIVALPROEX SODIUM
     Indication: Obsessive-compulsive disorder
  12. DIVALPROEX SODIUM [Suspect]
     Active Substance: DIVALPROEX SODIUM
     Indication: Psychotic disorder
  13. FLUOXETINE [Suspect]
     Active Substance: FLUOXETINE HYDROCHLORIDE
     Indication: Schizoaffective disorder bipolar type
     Dosage: 60 MILLIGRAM
     Route: 065
  14. FLUOXETINE [Suspect]
     Active Substance: FLUOXETINE HYDROCHLORIDE
     Indication: Obsessive-compulsive disorder
  15. FLUOXETINE [Suspect]
     Active Substance: FLUOXETINE HYDROCHLORIDE
     Indication: Psychotic disorder
  16. BUSPIRONE [Suspect]
     Active Substance: BUSPIRONE HYDROCHLORIDE
     Indication: Schizoaffective disorder bipolar type
     Dosage: 60 MILLIGRAM
     Route: 065
  17. BUSPIRONE [Suspect]
     Active Substance: BUSPIRONE HYDROCHLORIDE
     Indication: Obsessive-compulsive disorder
  18. BUSPIRONE [Suspect]
     Active Substance: BUSPIRONE HYDROCHLORIDE
     Indication: Psychotic disorder
  19. ZOPICLONE [Suspect]
     Active Substance: ZOPICLONE
     Indication: Schizoaffective disorder bipolar type
     Dosage: 15 MILLIGRAM
     Route: 065
  20. ZOPICLONE [Suspect]
     Active Substance: ZOPICLONE
     Indication: Obsessive-compulsive disorder
  21. ZOPICLONE [Suspect]
     Active Substance: ZOPICLONE
     Indication: Psychotic disorder
  22. ZUCLOPENTHIXOL DECANOATE [Suspect]
     Active Substance: ZUCLOPENTHIXOL DECANOATE
     Indication: Schizoaffective disorder bipolar type
     Dosage: 450 MILLIGRAM, Q.WK.
     Route: 065
  23. ZUCLOPENTHIXOL DECANOATE [Suspect]
     Active Substance: ZUCLOPENTHIXOL DECANOATE
     Indication: Obsessive-compulsive disorder
  24. ZUCLOPENTHIXOL DECANOATE [Suspect]
     Active Substance: ZUCLOPENTHIXOL DECANOATE
     Indication: Psychotic disorder
  25. PROCYCLIDINE [Suspect]
     Active Substance: PROCYCLIDINE
     Indication: Schizoaffective disorder bipolar type
     Dosage: UNK
     Route: 065
  26. PROCYCLIDINE [Suspect]
     Active Substance: PROCYCLIDINE
     Indication: Obsessive-compulsive disorder
  27. PROCYCLIDINE [Suspect]
     Active Substance: PROCYCLIDINE
     Indication: Psychotic disorder

REACTIONS (11)
  - Disorientation [Recovering/Resolving]
  - Irritability [Unknown]
  - Condition aggravated [Unknown]
  - Aggression [Unknown]
  - Orthostatic hypotension [Unknown]
  - Sedation [Recovering/Resolving]
  - Delirium [Unknown]
  - Tardive dyskinesia [Unknown]
  - Obesity [Recovering/Resolving]
  - Drug interaction [Unknown]
  - Antipsychotic drug level increased [Unknown]
